FAERS Safety Report 5456822-1 (Version None)
Quarter: 2007Q3

REPORT INFORMATION
  Report Type: 
  Country: None (occurrence: None)
  Receive Date: 20070918
  Receipt Date: 20070430
  Transmission Date: 20080115
  Serious: No
  Sender: FDA-Public Use
  Company Number: US-ASTRAZENECA-2006UW26401

PATIENT
  Age: 310 Month
  Sex: Female
  Weight: 97.7 kg

DRUGS (3)
  1. SEROQUEL [Suspect]
     Indication: DEPRESSION
     Dosage: 100 - 200 MG
     Route: 048
     Dates: start: 20030314, end: 20051001
  2. SEROQUEL [Suspect]
     Indication: ANXIETY
     Dosage: 100 - 200 MG
     Route: 048
     Dates: start: 20030314, end: 20051001
  3. SEROQUEL [Suspect]
     Indication: PSYCHOTIC DISORDER
     Dosage: 100 - 200 MG
     Route: 048
     Dates: start: 20030314, end: 20051001

REACTIONS (2)
  - DIABETES MELLITUS [None]
  - GESTATIONAL DIABETES [None]
